FAERS Safety Report 5265700-2 (Version None)
Quarter: 2007Q1

REPORT INFORMATION
  Report Type: 
  Country: None (occurrence: None)
  Receive Date: 20061213
  Receipt Date: 20040225
  Transmission Date: 20070707
  Serious: Yes (Other)
  Sender: FDA-Public Use
  Company Number: 2004UW03411

PATIENT
  Age: 78 Year
  Sex: Male

DRUGS (4)
  1. IRESSA [Suspect]
     Indication: NON-SMALL CELL LUNG CANCER
     Dosage: 250 MG QD PO
     Route: 048
  2. LOPRESSOR [Concomitant]
  3. TIAZAC [Concomitant]
  4. DILAUDID [Concomitant]

REACTIONS (2)
  - FEELING COLD [None]
  - RASH PRURITIC [None]
